FAERS Safety Report 9473573 (Version 2)
Quarter: 2013Q3

REPORT INFORMATION
  Report Type: Report from Study
  Country: DE (occurrence: DE)
  Receive Date: 20130823
  Receipt Date: 20130912
  Transmission Date: 20140515
  Serious: Yes (Hospitalization)
  Sender: FDA-Public Use
  Company Number: DE-TEVA-426861GER

PATIENT
  Sex: Male

DRUGS (32)
  1. DOXORUBICIN [Suspect]
     Indication: B-CELL LYMPHOMA
     Dosage: 114 MILLIGRAM DAILY; EVERY 2 WEEKS
     Route: 042
     Dates: start: 20130725
  2. DOXORUBICIN [Suspect]
     Dates: start: 20130809
  3. PREDNISONE [Suspect]
     Indication: B-CELL LYMPHOMA
     Dosage: 100 MILLIGRAM DAILY; EVERY 2 WEEKS FOR 5 DAYS
     Route: 048
     Dates: start: 20130725, end: 20130729
  4. PREDNISONE [Suspect]
     Dosage: 100 MILLIGRAM DAILY;
  5. CYCLOPHOSPHAMIDE [Suspect]
     Indication: B-CELL LYMPHOMA
     Dosage: 1715 MILLIGRAM DAILY; EVERY 2 WEEKS
     Route: 042
     Dates: start: 20130725
  6. CYCLOPHOSPHAMIDE [Suspect]
     Dates: start: 20130809
  7. RITUXIMAB [Suspect]
     Indication: B-CELL LYMPHOMA
     Dosage: EVERY 2 WEEKS
     Route: 042
     Dates: start: 20130724
  8. RITUXIMAB [Suspect]
     Dosage: 822 MILLIGRAM DAILY;
     Dates: start: 20130808
  9. PEGFILGRASTIM [Suspect]
     Indication: B-CELL LYMPHOMA
     Dosage: 6 MILLIGRAM DAILY; EVERY 2 WEEKS
     Route: 058
     Dates: start: 20130728
  10. PEGFILGRASTIM [Suspect]
     Dates: start: 20130813
  11. LIPOSOMAL VINCRISTINE [Suspect]
     Dosage: 4.58 MILLIGRAM DAILY; EVERY 2 WEEKS
     Route: 042
     Dates: start: 20130725
  12. LIPOSOMAL VINCRISTINE [Suspect]
     Dates: start: 20130810
  13. ENALAPRIL MALEATE [Concomitant]
     Indication: HYPERTENSION
     Dosage: 20 MILLIGRAM DAILY;
     Route: 048
     Dates: start: 20130708
  14. AMLODIPINE [Concomitant]
     Indication: HYPERTENSION
     Dosage: 5 MILLIGRAM DAILY;
     Route: 048
     Dates: start: 20130708
  15. ALLOPURINOL [Concomitant]
     Indication: HYPERURICAEMIA
     Dosage: 300 MILLIGRAM DAILY;
     Route: 048
     Dates: start: 20130708
  16. TRIMETOPRIM + SULFAMETOXAZOL [Concomitant]
     Indication: PROPHYLAXIS
     Route: 048
  17. ACICLOVIR [Concomitant]
     Indication: ANTIVIRAL PROPHYLAXIS
     Dosage: 1600 MILLIGRAM DAILY;
     Route: 048
     Dates: start: 20130723
  18. SULFAMETHOXAZOLE [Concomitant]
     Indication: ANTIFUNGAL PROPHYLAXIS
     Dosage: 800 MILLIGRAM DAILY; MONDAY AND THURSDAY
     Dates: start: 20130725
  19. CHLORTHALIDONE [Concomitant]
     Indication: HYPERTENSION
     Dosage: 25 MILLIGRAM DAILY;
     Route: 048
     Dates: start: 20130708
  20. LEVOTHYROXINE SODIUM [Concomitant]
     Indication: HYPOTHYROIDISM
     Route: 048
     Dates: start: 20130708
  21. GRANISETRON HYDROCHLORIDE [Concomitant]
     Dosage: 3 MILLIGRAM DAILY;
     Route: 042
     Dates: start: 20130809, end: 20130810
  22. AMPHOTERICIN B [Concomitant]
     Indication: PROPHYLAXIS
     Dosage: 4X2 PIPETTES
     Route: 048
     Dates: start: 20130806
  23. PANTOPRAZOLE [Concomitant]
     Indication: PROPHYLAXIS
     Dosage: 20 MILLIGRAM DAILY;
     Route: 048
     Dates: start: 20130807, end: 20130810
  24. ZOPICLONE [Concomitant]
     Dosage: 7.5 MILLIGRAM DAILY;
     Dates: start: 20130807, end: 20130809
  25. VANCOMYCIN [Concomitant]
     Route: 042
     Dates: start: 20130806, end: 20130806
  26. TRIMETHOPRIM [Concomitant]
     Dosage: 160 MILLIGRAM DAILY; MONDAY + THURSDAY
     Dates: start: 20130725
  27. ALIZAPRIDE HYDROCHLORIDE [Concomitant]
     Indication: VOMITING
     Dosage: 200 MILLIGRAM DAILY;
     Route: 042
     Dates: start: 20130809, end: 20130810
  28. MESNA [Concomitant]
     Dosage: 1200 MILLIGRAM DAILY;
     Route: 042
     Dates: start: 20130809, end: 20130809
  29. FUROSEMIDE [Concomitant]
     Dosage: 40 MILLIGRAM DAILY;
     Route: 042
     Dates: start: 20130810, end: 20130811
  30. CERTOPARIN SODIUM [Concomitant]
     Dosage: 3000 IU (INTERNATIONAL UNIT) DAILY;
     Route: 058
     Dates: start: 20130806, end: 20130810
  31. DIPYRONE [Concomitant]
     Indication: BACK PAIN
     Route: 048
     Dates: start: 20130620
  32. ENOXAPARIN SODIUM [Concomitant]
     Route: 058
     Dates: start: 20130815

REACTIONS (2)
  - Seroma [Unknown]
  - Febrile neutropenia [Recovered/Resolved]
